FAERS Safety Report 10573210 (Version 2)
Quarter: 2014Q4

REPORT INFORMATION
  Report Type: Spontaneous
  Country: US (occurrence: US)
  Receive Date: 20141110
  Receipt Date: 20141119
  Transmission Date: 20150529
  Serious: Yes (Life-Threatening, Hospitalization, Other)
  Sender: FDA-Public Use
  Company Number: US-JNJFOC-20141104100

PATIENT
  Age: 28 Year
  Sex: Male

DRUGS (3)
  1. LOPERAMIDE HYDROCHLORIDE. [Suspect]
     Active Substance: LOPERAMIDE HYDROCHLORIDE
     Route: 065
  2. AMITRIPTYLINE [Suspect]
     Active Substance: AMITRIPTYLINE
     Indication: PRODUCT USED FOR UNKNOWN INDICATION
     Route: 065
  3. LOPERAMIDE HYDROCHLORIDE. [Suspect]
     Active Substance: LOPERAMIDE HYDROCHLORIDE
     Indication: DRUG ABUSE
     Route: 065

REACTIONS (11)
  - Procedural complication [Recovered/Resolved]
  - Dependence [Unknown]
  - Electrocardiogram QT prolonged [Recovered/Resolved]
  - Syncope [Unknown]
  - Ventricular fibrillation [Recovered/Resolved]
  - Blood magnesium increased [Unknown]
  - Tachycardia [Recovered/Resolved]
  - Torsade de pointes [Recovered/Resolved]
  - Electrocardiogram QRS complex prolonged [Recovered/Resolved]
  - Blood potassium decreased [Unknown]
  - Blood magnesium decreased [Unknown]
